FAERS Safety Report 13572328 (Version 2)
Quarter: 2017Q2

REPORT INFORMATION
  Report Type: Spontaneous
  Country: FR (occurrence: FR)
  Receive Date: 20170523
  Receipt Date: 20170629
  Transmission Date: 20170830
  Serious: Yes (Hospitalization, Other)
  Sender: FDA-Public Use
  Company Number: FR-VIIV HEALTHCARE LIMITED-FR2017GSK072929

PATIENT
  Age: 38 Year
  Sex: Female

DRUGS (1)
  1. TRIUMEQ [Suspect]
     Active Substance: ABACAVIR SULFATE\DOLUTEGRAVIR SODIUM\LAMIVUDINE
     Indication: PRODUCT USED FOR UNKNOWN INDICATION
     Dosage: 1 DF, 1D
     Route: 048
     Dates: start: 20170228, end: 20170315

REACTIONS (7)
  - Depression [Unknown]
  - Aphasia [Unknown]
  - Motor dysfunction [Recovering/Resolving]
  - Toxicity to various agents [Unknown]
  - Dysarthria [Recovering/Resolving]
  - Monoparesis [Recovering/Resolving]
  - Conversion disorder [Recovering/Resolving]

NARRATIVE: CASE EVENT DATE: 201703
